FAERS Safety Report 12287197 (Version 1)
Quarter: 2016Q2

REPORT INFORMATION
  Report Type: Spontaneous
  Country: IT (occurrence: IT)
  Receive Date: 20160420
  Receipt Date: 20160420
  Transmission Date: 20160815
  Serious: Yes (Hospitalization)
  Sender: FDA-Public Use
  Company Number: IT-JNJFOC-20160413473

PATIENT
  Age: 5 Year
  Sex: Female

DRUGS (3)
  1. NORVIR [Suspect]
     Active Substance: RITONAVIR
     Indication: HIV INFECTION CDC GROUP I
     Route: 048
     Dates: start: 20160208, end: 20160208
  2. INTELENCE [Concomitant]
     Active Substance: ETRAVIRINE
     Route: 065
  3. PREZISTA [Suspect]
     Active Substance: DARUNAVIR ETHANOLATE
     Indication: HIV INFECTION CDC GROUP I
     Route: 048
     Dates: start: 20160208, end: 20160208

REACTIONS (2)
  - Haematemesis [Unknown]
  - Abdominal pain upper [Unknown]

NARRATIVE: CASE EVENT DATE: 20160208
